FAERS Safety Report 8578160-0 (Version None)
Quarter: 2012Q3

REPORT INFORMATION
  Report Type: 
  Country: None (occurrence: None)
  Receive Date: 20120808
  Receipt Date: 20120807
  Transmission Date: 20120928
  Serious: No
  Sender: FDA-Public Use
  Company Number: US-PFIZER INC-2012179894

PATIENT
  Age: 54 Year
  Sex: Female

DRUGS (1)
  1. XALKORI [Suspect]
     Indication: LUNG NEOPLASM MALIGNANT
     Dosage: 250 MG, 2X/DAY
     Dates: start: 20110927

REACTIONS (4)
  - VISUAL ACUITY REDUCED [None]
  - PHOTOPSIA [None]
  - VISION BLURRED [None]
  - DIZZINESS [None]
